FAERS Safety Report 4332227-1 (Version None)
Quarter: 2004Q1

REPORT INFORMATION
  Report Type: 
  Country: None (occurrence: None)
  Receive Date: 20040331
  Receipt Date: 20040316
  Transmission Date: 20041129
  Serious: Yes (Other)
  Sender: FDA-Public Use
  Company Number: CA_040306749

PATIENT
  Age: 56 Year
  Sex: Female

DRUGS (13)
  1. HUMULIN N [Suspect]
     Dosage: 10 U
     Dates: start: 20040305
  2. ACTOS [Suspect]
     Dates: start: 20040201
  3. TYLENOL NO. 2 [Concomitant]
  4. MAXERAN (METOCLOPRAMIDE HYDROCHLORIDE) [Concomitant]
  5. CYTOMEL [Concomitant]
  6. PROMETRIUM [Concomitant]
  7. ESTRACE [Concomitant]
  8. ELTROXIN (LEVOTHYROXINE SODIUM) [Concomitant]
  9. METFORMIN [Concomitant]
  10. MELATONIN [Concomitant]
  11. DIAMICRON (GLICLAZIDE) [Concomitant]
  12. FOLIC ACID [Concomitant]
  13. GLYBURIDE [Concomitant]

REACTIONS (12)
  - BLOOD PRESSURE INCREASED [None]
  - CARDIAC FAILURE CONGESTIVE [None]
  - CARDIOMEGALY [None]
  - DIZZINESS [None]
  - DYSPNOEA [None]
  - ELECTROCARDIOGRAM ST-T CHANGE [None]
  - QRS AXIS ABNORMAL [None]
  - RESPIRATORY DISTRESS [None]
  - SINUS TACHYCARDIA [None]
  - TROPONIN I INCREASED [None]
  - VOMITING [None]
  - WHITE BLOOD CELL COUNT INCREASED [None]
